FAERS Safety Report 16204745 (Version 2)
Quarter: 2019Q2

REPORT INFORMATION
  Report Type: Report from Study
  Country: BR (occurrence: BR)
  Receive Date: 20190416
  Receipt Date: 20190620
  Transmission Date: 20190711
  Serious: Yes (Hospitalization)
  Sender: FDA-Public Use
  Company Number: BR-BIOGEN-2019BI00725801

PATIENT
  Sex: Female

DRUGS (1)
  1. TYSABRI [Suspect]
     Active Substance: NATALIZUMAB
     Indication: MULTIPLE SCLEROSIS
     Route: 065
     Dates: start: 201512, end: 201802

REACTIONS (6)
  - Gastrointestinal disorder [Unknown]
  - Dysstasia [Unknown]
  - Feeding disorder [Unknown]
  - Abdominal pain upper [Unknown]
  - Feeling hot [Not Recovered/Not Resolved]
  - Hyperhidrosis [Unknown]
